FAERS Safety Report 15393931 (Version 1)
Quarter: 2018Q3

REPORT INFORMATION
  Report Type: Spontaneous
  Country: US (occurrence: US)
  Receive Date: 20180917
  Receipt Date: 20180917
  Transmission Date: 20181010
  Serious: No
  Sender: FDA-Public Use
  Company Number: US-BIOGEN-2018BI00630225

PATIENT
  Sex: Female

DRUGS (1)
  1. ZINBRYTA [Suspect]
     Active Substance: DACLIZUMAB
     Indication: MULTIPLE SCLEROSIS
     Route: 058
     Dates: start: 20170501

REACTIONS (10)
  - Pain in extremity [Unknown]
  - Poverty of speech [Unknown]
  - Confusional state [Unknown]
  - Rash [Unknown]
  - General physical health deterioration [Not Recovered/Not Resolved]
  - Pallor [Unknown]
  - Fear [Unknown]
  - Bladder disorder [Unknown]
  - Middle insomnia [Unknown]
  - Constipation [Unknown]
